FAERS Safety Report 9613594 (Version 2)
Quarter: 2014Q1

REPORT INFORMATION
  Report Type: Spontaneous
  Country: US (occurrence: US)
  Receive Date: 20131010
  Receipt Date: 20140214
  Transmission Date: 20141002
  Serious: Yes (Other)
  Sender: FDA-Public Use
  Company Number: US-009507513-1310USA002466

PATIENT
  Sex: Female
  Weight: 54.42 kg

DRUGS (3)
  1. MIRALAX [Suspect]
     Indication: CONSTIPATION
     Dosage: UNK, QOD
     Route: 048
  2. MIRALAX [Suspect]
     Dosage: 17 G, QD
     Route: 048
     Dates: start: 2003
  3. LEVOTHYROXINE SODIUM [Concomitant]
     Indication: HYPOTHYROIDISM
     Dosage: UNK, UNKNOWN
     Route: 065

REACTIONS (4)
  - Renal surgery [Unknown]
  - Intestinal obstruction [Unknown]
  - Constipation [Unknown]
  - Incorrect drug administration duration [Unknown]
